FAERS Safety Report 14326692 (Version 4)
Quarter: 2023Q4

REPORT INFORMATION
  Report Type: Spontaneous
  Country: US (occurrence: None)
  Receive Date: 20171227
  Receipt Date: 20231117
  Transmission Date: 20240109
  Serious: Yes (Hospitalization, Other)
  Sender: FDA-Public Use
  Company Number: 2017SF30899

PATIENT
  Age: 682 Month
  Sex: Male
  Weight: 90.3 kg

DRUGS (60)
  1. NEXIUM [Suspect]
     Active Substance: ESOMEPRAZOLE MAGNESIUM
     Indication: Gastrooesophageal reflux disease
     Route: 048
     Dates: start: 2008, end: 2017
  2. NEXIUM [Suspect]
     Active Substance: ESOMEPRAZOLE MAGNESIUM
     Indication: Hiatus hernia
     Route: 048
     Dates: start: 2008, end: 2017
  3. NEXIUM [Suspect]
     Active Substance: ESOMEPRAZOLE MAGNESIUM
     Indication: Gastrooesophageal reflux disease
     Route: 048
     Dates: start: 201108, end: 201610
  4. NEXIUM [Suspect]
     Active Substance: ESOMEPRAZOLE MAGNESIUM
     Indication: Hiatus hernia
     Route: 048
     Dates: start: 201108, end: 201610
  5. NEXIUM [Suspect]
     Active Substance: ESOMEPRAZOLE MAGNESIUM
     Indication: Gastrooesophageal reflux disease
     Dosage: GENERIC
     Dates: start: 2017
  6. NEXIUM [Suspect]
     Active Substance: ESOMEPRAZOLE MAGNESIUM
     Indication: Hiatus hernia
     Dosage: GENERIC
     Dates: start: 2017
  7. NEXIUM [Suspect]
     Active Substance: ESOMEPRAZOLE MAGNESIUM
     Indication: Gastrooesophageal reflux disease
     Route: 048
     Dates: start: 20161216
  8. NEXIUM [Suspect]
     Active Substance: ESOMEPRAZOLE MAGNESIUM
     Indication: Hiatus hernia
     Route: 048
     Dates: start: 20161216
  9. NEXIUM [Suspect]
     Active Substance: ESOMEPRAZOLE MAGNESIUM
     Indication: Gastrooesophageal reflux disease
     Dosage: GENERIC
     Dates: start: 20170131
  10. NEXIUM [Suspect]
     Active Substance: ESOMEPRAZOLE MAGNESIUM
     Indication: Hiatus hernia
     Dosage: GENERIC
     Dates: start: 20170131
  11. NEXIUM [Suspect]
     Active Substance: ESOMEPRAZOLE MAGNESIUM
     Indication: Gastrooesophageal reflux disease
     Dosage: GENERIC
     Dates: start: 20170418
  12. NEXIUM [Suspect]
     Active Substance: ESOMEPRAZOLE MAGNESIUM
     Indication: Hiatus hernia
     Dosage: GENERIC
     Dates: start: 20170418
  13. NEXIUM 24HR [Suspect]
     Active Substance: ESOMEPRAZOLE MAGNESIUM
     Indication: Gastrooesophageal reflux disease
     Route: 048
     Dates: start: 20080101, end: 20110731
  14. NEXIUM 24HR [Suspect]
     Active Substance: ESOMEPRAZOLE MAGNESIUM
     Indication: Hiatus hernia
     Route: 048
     Dates: start: 20080101, end: 20110731
  15. ACIPHEX [Suspect]
     Active Substance: RABEPRAZOLE SODIUM
     Indication: Gastrooesophageal reflux disease
     Dates: start: 2004, end: 2008
  16. ACIPHEX [Suspect]
     Active Substance: RABEPRAZOLE SODIUM
     Indication: Hiatus hernia
     Dates: start: 2004, end: 2008
  17. TAMSULOSIN [Concomitant]
     Active Substance: TAMSULOSIN
     Dates: start: 2011
  18. TAMSULOSIN [Concomitant]
     Active Substance: TAMSULOSIN
     Route: 048
     Dates: start: 20161216
  19. HYDROCHLOROTHIAZIDE\LISINOPRIL [Concomitant]
     Active Substance: HYDROCHLOROTHIAZIDE\LISINOPRIL
     Dosage: 25/37.5MG PO QAM
     Route: 048
     Dates: start: 201701
  20. COLCHICINE [Concomitant]
     Active Substance: COLCHICINE
     Dates: start: 2016
  21. COLCHICINE [Concomitant]
     Active Substance: COLCHICINE
     Route: 048
     Dates: start: 20161216
  22. AZITHROMYCIN [Concomitant]
     Active Substance: AZITHROMYCIN
     Dates: end: 2016
  23. ASPIRIN [Concomitant]
     Active Substance: ASPIRIN
     Route: 048
     Dates: end: 2016
  24. ASPIRIN [Concomitant]
     Active Substance: ASPIRIN
     Route: 048
     Dates: start: 20161216
  25. FISH OIL [Concomitant]
     Active Substance: FISH OIL
     Indication: Lipids
  26. RANITIDINE [Concomitant]
     Active Substance: RANITIDINE
     Dates: start: 201605, end: 2017
  27. TUMS [Concomitant]
     Active Substance: CALCIUM CARBONATE
     Route: 065
     Dates: start: 1994, end: 2004
  28. ALLOPURINOL [Concomitant]
     Active Substance: ALLOPURINOL
     Route: 048
     Dates: start: 20161216
  29. EXFORGE [Concomitant]
     Active Substance: AMLODIPINE BESYLATE\VALSARTAN
     Dosage: 10-320 MG TAKE 1 TABLET BY MOUTH DAILY.
     Route: 048
     Dates: start: 20161216
  30. EXFORGE [Concomitant]
     Active Substance: AMLODIPINE BESYLATE\VALSARTAN
     Route: 048
  31. ATORVASTATIN [Concomitant]
     Active Substance: ATORVASTATIN
     Route: 048
     Dates: start: 20161216
  32. MOMETASONE [Concomitant]
     Active Substance: MOMETASONE
     Dosage: 50 MEG/ACTUATION 2 SPRAYS BY NASAL ROUTE DAILY.
     Route: 045
     Dates: start: 20161216
  33. LASIX [Concomitant]
     Active Substance: FUROSEMIDE
     Route: 048
     Dates: start: 20171117
  34. HYDRALAZINE [Concomitant]
     Active Substance: HYDRALAZINE HYDROCHLORIDE
     Route: 048
     Dates: start: 20171117
  35. FLUTICASONE [Concomitant]
     Active Substance: FLUTICASONE
     Dates: start: 20171117
  36. CARDURA [Concomitant]
     Active Substance: DOXAZOSIN MESYLATE
     Dates: start: 20170131
  37. CLARITIN [Concomitant]
     Active Substance: LORATADINE
     Dates: start: 20170131
  38. METOPROLOL SUCCINATE [Concomitant]
     Active Substance: METOPROLOL SUCCINATE
     Dosage: 100.0MG UNKNOWN
     Route: 048
     Dates: start: 20170131
  39. PROTONIX [Concomitant]
     Active Substance: PANTOPRAZOLE SODIUM
     Dates: start: 20170131
  40. PROTONIX [Concomitant]
     Active Substance: PANTOPRAZOLE SODIUM
     Dosage: GENERIC
  41. PROTONIX [Concomitant]
     Active Substance: PANTOPRAZOLE SODIUM
     Dosage: GENERIC
     Route: 048
     Dates: start: 20171117
  42. CETRIZINE HCL/ZYRTEC [Concomitant]
     Indication: Multiple allergies
  43. IBUPROFEN [Concomitant]
     Active Substance: IBUPROFEN
     Route: 048
  44. OMEPRAZOLE [Concomitant]
     Active Substance: OMEPRAZOLE
     Dosage: 20.0MG UNKNOWN
     Route: 048
  45. CLOPIDOGREL [Concomitant]
     Active Substance: CLOPIDOGREL BISULFATE
  46. NITROGLYCERIN [Concomitant]
     Active Substance: NITROGLYCERIN
     Dosage: 0.4MG UNKNOWN
     Route: 060
  47. PRAVASTATIN [Concomitant]
     Active Substance: PRAVASTATIN
  48. VALSARTAN [Concomitant]
     Active Substance: VALSARTAN
     Route: 048
  49. VOLTAREN [Concomitant]
     Active Substance: DICLOFENAC SODIUM
     Dates: end: 2016
  50. POTASSIUM CHLORIDE [Concomitant]
     Active Substance: POTASSIUM CHLORIDE
  51. LISINOPRIL [Concomitant]
     Active Substance: LISINOPRIL
  52. FENOFIBRATE [Concomitant]
     Active Substance: FENOFIBRATE
     Dates: start: 20140522
  53. INDOMETHACIN [Concomitant]
     Active Substance: INDOMETHACIN
     Dates: start: 20160707
  54. AMOXICILLIN [Concomitant]
     Active Substance: AMOXICILLIN
  55. RAMIPRIL [Concomitant]
     Active Substance: RAMIPRIL
  56. INDAPAMIDE [Concomitant]
     Active Substance: INDAPAMIDE
  57. LOVAZA [Concomitant]
     Active Substance: OMEGA-3-ACID ETHYL ESTERS
  58. TRIAMTERENE [Concomitant]
     Active Substance: TRIAMTERENE
  59. HYDROCHLOROTHIAZIDE [Concomitant]
     Active Substance: HYDROCHLOROTHIAZIDE
  60. PREDNISONE [Concomitant]
     Active Substance: PREDNISONE

REACTIONS (4)
  - Chronic kidney disease [Not Recovered/Not Resolved]
  - Tubulointerstitial nephritis [Not Recovered/Not Resolved]
  - Renal failure [Unknown]
  - Acute kidney injury [Unknown]

NARRATIVE: CASE EVENT DATE: 20111001
